FAERS Safety Report 5869219-7 (Version None)
Quarter: 2008Q3

REPORT INFORMATION
  Report Type: 
  Country: None (occurrence: None)
  Receive Date: 20080903
  Receipt Date: 20080821
  Transmission Date: 20090109
  Serious: Yes (Other)
  Sender: FDA-Public Use
  Company Number: US-ELI_LILLY_AND_COMPANY-US200808004299

PATIENT
  Sex: Female

DRUGS (1)
  1. BYETTA [Suspect]
     Indication: DIABETES MELLITUS
     Dosage: UNK, UNKNOWN
     Route: 058
     Dates: start: 20050101

REACTIONS (7)
  - CHILLS [None]
  - DIVERTICULITIS [None]
  - FEELING JITTERY [None]
  - GASTRIC DISORDER [None]
  - KNEE OPERATION [None]
  - NAUSEA [None]
  - OESOPHAGEAL DISORDER [None]
